FAERS Safety Report 7492638-2 (Version None)
Quarter: 2011Q2

REPORT INFORMATION
  Report Type: 
  Country: None (occurrence: None)
  Receive Date: 20110519
  Receipt Date: 20080811
  Transmission Date: 20111010
  Serious: Yes (Death)
  Sender: FDA-Public Use
  Company Number: US-BAYER-200830007NA

PATIENT
  Age: 13 Year
  Sex: Female
  Weight: 61.859 kg

DRUGS (19)
  1. NEO-SYNEPHRINOL [Concomitant]
     Dosage: 10 MCG/MG
     Route: 042
     Dates: start: 20050719
  2. LOVENOX [Concomitant]
     Dosage: 50 MG, UNK
     Route: 030
     Dates: start: 20050710
  3. CEFOXITIN [Concomitant]
     Dosage: 1 G, UNK
     Route: 042
     Dates: start: 20050719
  4. HEPARIN [Concomitant]
     Dosage: 13000 U, UNK
     Dates: start: 20050719
  5. PROTAMINE SULFATE [Concomitant]
     Dosage: 150 MG, UNK
     Route: 042
     Dates: start: 20050719
  6. HEPARIN [Concomitant]
     Indication: ANTICOAGULANT THERAPY
     Dosage: VARIOUS DOSES
     Route: 042
     Dates: start: 20050706
  7. LASIX [Concomitant]
     Dosage: 25 MG, TID
     Route: 048
  8. PROPOFOL [Concomitant]
     Dosage: 150 MG, UNK
     Route: 042
     Dates: start: 20050719
  9. FENTANYL [Concomitant]
     Dosage: 1150 MCG
     Route: 042
     Dates: start: 20050719
  10. EPINEPHRINE [Concomitant]
     Dosage: 266 MG, UNK
     Route: 042
     Dates: start: 20050719
  11. COUMADIN [Concomitant]
     Dosage: 4 MG, QD
  12. MIDAZOLAM HCL [Concomitant]
     Dosage: 5 MG, UNK
     Route: 042
     Dates: start: 20050719
  13. TRASYLOL [Suspect]
     Indication: MITRAL VALVE REPLACEMENT
     Dosage: PRIME 100ML; INFUSION DRUG TOTAL 1.32M-UNITS AT 25ML/HR
     Route: 042
     Dates: start: 20050719, end: 20050719
  14. ATENOLOL [Concomitant]
     Dosage: 25 MG, BID
     Route: 048
  15. CEFAZOLIN [Concomitant]
     Dosage: 2000 MG, UNK
     Route: 042
     Dates: start: 20050719
  16. VECURONIUM BROMIDE [Concomitant]
     Dosage: 20 MG, UNK
     Route: 042
     Dates: start: 20050719
  17. DEXAMETHASONE [Concomitant]
     Dosage: 12 MG, UNK
     Route: 042
     Dates: start: 20050719
  18. LASIX [Concomitant]
     Dosage: 5MG/HR
     Route: 042
     Dates: start: 20050719
  19. MILRINONE [Concomitant]
     Dosage: 3000 MG, UNK
     Route: 042
     Dates: start: 20050719

REACTIONS (3)
  - INJURY [None]
  - RENAL INJURY [None]
  - RENAL FAILURE [None]
